FAERS Safety Report 4915846-0 (Version None)
Quarter: 2006Q1

REPORT INFORMATION
  Report Type: 
  Country: None (occurrence: None)
  Receive Date: 20060214
  Receipt Date: 20051024
  Transmission Date: 20060701
  Serious: Yes (Death)
  Sender: FDA-Public Use
  Company Number: 75945

PATIENT
  Age: 46 Year
  Sex: Female
  Weight: 63 kg

DRUGS (2)
  1. AMNESTEEM [Suspect]
     Dosage: 80MG, BID, PO
     Route: 048
     Dates: start: 20050215, end: 20050601
  2. DECADRON, DILANTIN [Concomitant]

REACTIONS (1)
  - DEATH [None]
